FAERS Safety Report 9136298 (Version 1)
Quarter: 2013Q1

REPORT INFORMATION
  Report Type: Spontaneous
  Country: US (occurrence: US)
  Receive Date: 20130304
  Receipt Date: 20130304
  Transmission Date: 20140127
  Serious: No
  Sender: FDA-Public Use
  Company Number: US-ABBOTT-12P-163-1009697-00

PATIENT
  Sex: Male

DRUGS (3)
  1. ANDROGEL [Suspect]
     Indication: BLOOD TESTOSTERONE DECREASED
     Dosage: 4 PUMPS PER DAY
     Dates: start: 201210, end: 201211
  2. ANDROGEL [Suspect]
     Dosage: 6 PUMPS PER DAY
     Dates: start: 201211
  3. DURAGESIC [Concomitant]
     Indication: PANCREATIC CARCINOMA

REACTIONS (1)
  - Drug ineffective [Unknown]
